FAERS Safety Report 4284204-7 (Version None)
Quarter: 2004Q1

REPORT INFORMATION
  Report Type: 
  Country: None (occurrence: None)
  Receive Date: 20040130
  Receipt Date: 20040120
  Transmission Date: 20041129
  Serious: Yes (Death)
  Sender: FDA-Public Use
  Company Number: AU-JNJFOC-20040104071

PATIENT
  Age: 78 Year
  Sex: Female

DRUGS (3)
  1. REOPRO [Suspect]
     Indication: ANGIOPLASTY
     Dosage: INJECTION
     Dates: start: 20031226, end: 20031226
  2. HEPARIN [Concomitant]
  3. CLOPIDOGREL BISULFATE [Concomitant]

REACTIONS (3)
  - MALAISE [None]
  - POST PROCEDURAL COMPLICATION [None]
  - PULMONARY HAEMORRHAGE [None]
